FAERS Safety Report 9197204 (Version 1)
Quarter: 2013Q1

REPORT INFORMATION
  Report Type: Spontaneous
  Country: US (occurrence: None)
  Receive Date: 20120709
  Receipt Date: 20120709
  Transmission Date: 20140127
  Serious: Yes (Other)
  Sender: FDA-Public Use
  Company Number: PHEH2011US05320

PATIENT
  Age: 58 Year
  Sex: Male
  Weight: 102.5 kg

DRUGS (6)
  1. GLEEVEC [Suspect]
     Indication: GASTROINTESTINAL STROMAL TUMOUR
     Route: 048
     Dates: start: 200909, end: 201010
  2. CRESTOR (ROSUVASTATIN CALCIUM) [Concomitant]
  3. PREVACID (LANSOPRAZOLE) [Concomitant]
  4. BABY ASPIRIN (ACETYLSALICYLIC ACID) [Concomitant]
  5. ASA (ACETYLSALICYLIC ACID) [Concomitant]
  6. HYDROCHLOROTHIAZIDE (HYDROCHLOROTHIAZIDE) [Concomitant]

REACTIONS (1)
  - Diarrhoea [None]
